FAERS Safety Report 4592803-8 (Version None)
Quarter: 2005Q1

REPORT INFORMATION
  Report Type: 
  Country: None (occurrence: None)
  Receive Date: 20050228
  Receipt Date: 20050103
  Transmission Date: 20050727
  Serious: Yes (Hospitalization, Other)
  Sender: FDA-Public Use
  Company Number: US-BRISTOL-MYERS SQUIBB COMPANY-12811576

PATIENT
  Age: 57 Year
  Sex: Male
  Weight: 80 kg

DRUGS (13)
  1. ERBITUX [Suspect]
     Indication: COLON CANCER STAGE IV
     Dosage: 13-SEP-2004LOADDOSE 800 MG;WEEKLY DOSE 500 MG;INTER.25-OCT-2004;RESUMED 20-DEC-2004/D'CD 03-JAN-2005
     Route: 042
  2. ANZEMET [Concomitant]
     Indication: PREMEDICATION
     Route: 048
  3. BENADRYL [Concomitant]
     Indication: PREMEDICATION
     Route: 042
  4. DEXAMETHASONE [Concomitant]
     Indication: PREMEDICATION
     Route: 042
  5. LEVSIN PB [Concomitant]
     Indication: PREMEDICATION
     Dosage: X 2 DOSES.
     Route: 060
  6. ZANTAC [Concomitant]
     Indication: PREMEDICATION
     Route: 042
  7. ATENOLOL [Concomitant]
     Route: 048
  8. CAMPTOSAR [Concomitant]
     Dosage: ON DAYS 1, 8, 22, 29.
     Route: 042
     Dates: start: 20041206, end: 20041206
  9. IMODIUM [Concomitant]
     Route: 048
  10. LOTENSIN [Concomitant]
     Dosage: 15/12.5.  HOLD FOR {BP.
  11. LOVASTATIN [Concomitant]
     Route: 048
  12. PHENERGAN [Concomitant]
     Indication: VOMITING
     Route: 048
  13. PREVACID [Concomitant]
     Route: 048

REACTIONS (3)
  - BLOOD BILIRUBIN INCREASED [None]
  - CHOLELITHIASIS [None]
  - MALIGNANT NEOPLASM PROGRESSION [None]
